FAERS Safety Report 11527281 (Version 1)
Quarter: 2015Q3

REPORT INFORMATION
  Report Type: Report from Study
  Country: KR (occurrence: KR)
  Receive Date: 20150919
  Receipt Date: 20150919
  Transmission Date: 20151125
  Serious: No
  Sender: FDA-Public Use
  Company Number: PHHY2015KR113096

PATIENT
  Age: 21 Year
  Sex: Male

DRUGS (9)
  1. CODAEWON [Concomitant]
     Indication: COUGH
     Dosage: 3 DF, UNK
     Route: 048
     Dates: start: 20131213, end: 20131220
  2. TYLENOL ER [Concomitant]
     Active Substance: ACETAMINOPHEN
     Indication: NASOPHARYNGITIS
  3. CODAEWON [Concomitant]
     Indication: PROPHYLAXIS
  4. TASIGNA [Suspect]
     Active Substance: NILOTINIB
     Indication: CHRONIC MYELOID LEUKAEMIA
     Dosage: 600 MG, QD
     Route: 048
     Dates: start: 20150205
  5. MUCOPECT [Concomitant]
     Indication: PROPHYLAXIS
     Dosage: 90 MG, UNK
     Route: 048
     Dates: start: 20131213, end: 20131220
  6. TYLENOL ER [Concomitant]
     Active Substance: ACETAMINOPHEN
     Indication: PAIN
  7. LEROXACIN [Concomitant]
     Indication: PROPHYLAXIS
     Dosage: 3 DF, UNK
     Route: 048
     Dates: start: 20131213, end: 20131220
  8. PSEUDOEPHEDRINE [Concomitant]
     Active Substance: PSEUDOEPHEDRINE
     Indication: PROPHYLAXIS
     Dosage: 180 MG, UNK
     Route: 048
     Dates: start: 20131213, end: 20131220
  9. TYLENOL ER [Concomitant]
     Active Substance: ACETAMINOPHEN
     Indication: PYREXIA
     Dosage: 3 DF, UNK
     Route: 048
     Dates: start: 20131213, end: 20131220

REACTIONS (1)
  - Iron deficiency [Not Recovered/Not Resolved]

NARRATIVE: CASE EVENT DATE: 20150629
